FAERS Safety Report 15128533 (Version 3)
Quarter: 2018Q3

REPORT INFORMATION
  Report Type: Spontaneous
  Country: IE (occurrence: IE)
  Receive Date: 20180711
  Receipt Date: 20180726
  Transmission Date: 20181010
  Serious: Yes (Other)
  Sender: FDA-Public Use
  Company Number: IE-CONCORDIA PHARMACEUTICALS INC.-GSH201807-002398

PATIENT
  Age: 58 Year
  Sex: Female

DRUGS (2)
  1. PLAQUENIL [Suspect]
     Active Substance: HYDROXYCHLOROQUINE SULFATE
     Indication: SJOGREN^S SYNDROME
     Route: 065
     Dates: start: 2010
  2. PLAQUENIL [Suspect]
     Active Substance: HYDROXYCHLOROQUINE SULFATE
     Dosage: 200MG MORNING AND EVENING
     Dates: start: 201801

REACTIONS (4)
  - Macular degeneration [Unknown]
  - Optic nerve disorder [Unknown]
  - Visual field defect [Unknown]
  - Maculopathy [Unknown]

NARRATIVE: CASE EVENT DATE: 201708
